FAERS Safety Report 26169665 (Version 1)
Quarter: 2025Q4

REPORT INFORMATION
  Report Type: Spontaneous
  Country: US (occurrence: None)
  Receive Date: 20251216
  Receipt Date: 20251216
  Transmission Date: 20260118
  Serious: Yes (Hospitalization)
  Sender: FDA-CTU
  Company Number: None

PATIENT
  Age: 85 Year
  Sex: Female

DRUGS (5)
  1. NUPLAZID [Suspect]
     Active Substance: PIMAVANSERIN TARTRATE
     Indication: Parkinson^s disease psychosis
     Dosage: 34 MG DAILY ORAL
     Route: 048
     Dates: start: 20240322
  2. RYTARY [Concomitant]
     Active Substance: CARBIDOPA\LEVODOPA
  3. TROSPIUM [Concomitant]
     Active Substance: TROSPIUM
  4. OMEPRAZOLE [Concomitant]
     Active Substance: OMEPRAZOLE
  5. FAMOTIDINE [Concomitant]
     Active Substance: FAMOTIDINE

REACTIONS (2)
  - Feeling abnormal [None]
  - Decreased activity [None]

NARRATIVE: CASE EVENT DATE: 20251202
